FAERS Safety Report 18273449 (Version 2)
Quarter: 2020Q3

REPORT INFORMATION
  Report Type: Spontaneous
  Country: BR (occurrence: BR)
  Receive Date: 20200916
  Receipt Date: 20200921
  Transmission Date: 20201103
  Serious: Yes (Death)
  Sender: FDA-Public Use
  Company Number: BR-PFIZER INC-2020149643

PATIENT

DRUGS (1)
  1. LORBRENA [Suspect]
     Active Substance: LORLATINIB
     Indication: SMALL CELL LUNG CANCER
     Dosage: UNK

REACTIONS (3)
  - Nervous system disorder [Fatal]
  - Off label use [Unknown]
  - Product use in unapproved indication [Unknown]
